FAERS Safety Report 5042199-2 (Version None)
Quarter: 2006Q2

REPORT INFORMATION
  Report Type: 
  Country: None (occurrence: None)
  Receive Date: 20060601
  Receipt Date: 20060329
  Transmission Date: 20061013
  Serious: No
  Sender: FDA-Public Use
  Company Number: 2006PV011161

PATIENT
  Age: 58 Year
  Sex: Female
  Weight: 75.2971 kg

DRUGS (8)
  1. BYETTA [Suspect]
     Indication: DIABETES MELLITUS NON-INSULIN-DEPENDENT
     Dosage: SEE IMAGE
     Route: 058
     Dates: start: 20051101, end: 20051201
  2. BYETTA [Suspect]
     Indication: DIABETES MELLITUS NON-INSULIN-DEPENDENT
     Dosage: SEE IMAGE
     Route: 058
     Dates: start: 20051201
  3. FORTAMET ER [Concomitant]
  4. MIRTAZAPINE [Concomitant]
  5. AVANDIA [Concomitant]
  6. NOVOLOG MIX 70/30 [Concomitant]
  7. AVANDAMET [Concomitant]
  8. QUINAPRIL [Concomitant]

REACTIONS (3)
  - DECREASED APPETITE [None]
  - DIARRHOEA [None]
  - WEIGHT DECREASED [None]
